FAERS Safety Report 25687762 (Version 1)
Quarter: 2025Q3

REPORT INFORMATION
  Report Type: Report from Study
  Country: CN (occurrence: CN)
  Receive Date: 20250817
  Receipt Date: 20250817
  Transmission Date: 20251021
  Serious: Yes (Other)
  Sender: SANOFI AVENTIS
  Company Number: CN-DialogSolutions-SAAVPROD-PI810628-C1

PATIENT

DRUGS (4)
  1. CAPECITABINE [Suspect]
     Active Substance: CAPECITABINE
     Indication: Rectal cancer
     Dosage: 1000 MG/M2, BID ON DAYS 1-14, Q21D
     Route: 048
  2. OXALIPLATIN [Suspect]
     Active Substance: OXALIPLATIN
     Indication: Rectal cancer
     Route: 042
  3. SINTILIMAB [Suspect]
     Active Substance: SINTILIMAB
     Indication: Rectal cancer
     Route: 042
  4. CATEQUENTINIB [Suspect]
     Active Substance: CATEQUENTINIB
     Indication: Rectal cancer
     Route: 048

REACTIONS (1)
  - Liver injury [Unknown]
